FAERS Safety Report 6558544-2 (Version None)
Quarter: 2010Q1

REPORT INFORMATION
  Report Type: 
  Country: None (occurrence: None)
  Receive Date: 20100129
  Receipt Date: 20100125
  Transmission Date: 20100710
  Serious: Yes (Other)
  Sender: FDA-Public Use
  Company Number: US-MYLANLABS-2010S1001214

PATIENT
  Age: 48 Year
  Sex: Male

DRUGS (3)
  1. FENTANYL CITRATE [Suspect]
     Indication: BACK PAIN
     Dosage: CHANGES PATCH Q 48 HOURS
     Route: 062
     Dates: start: 20100118, end: 20100119
  2. FENTANYL CITRATE [Suspect]
     Dosage: CHANGES PATCH Q 48 HOURS
     Route: 062
     Dates: start: 20100119
  3. LISINOPRIL [Concomitant]
     Indication: HYPERTENSION
     Route: 048

REACTIONS (6)
  - CONFUSIONAL STATE [None]
  - LETHARGY [None]
  - MYDRIASIS [None]
  - NAUSEA [None]
  - OVERDOSE [None]
  - VISUAL IMPAIRMENT [None]
